FAERS Safety Report 5938583-2 (Version None)
Quarter: 2008Q4

REPORT INFORMATION
  Report Type: 
  Country: None (occurrence: None)
  Receive Date: 20081103
  Receipt Date: 20081029
  Transmission Date: 20090506
  Serious: Yes (Life-Threatening)
  Sender: FDA-Public Use
  Company Number: PHEH2008US09786

PATIENT
  Sex: Female

DRUGS (1)
  1. GENTEAL MODERATE LUBRICANT EYE DROPS (NVO) [Suspect]
     Dosage: UNK

REACTIONS (1)
  - EYE BURNS [None]
